FAERS Safety Report 7660145-X (Version None)
Quarter: 2011Q3

REPORT INFORMATION
  Report Type: 
  Country: None (occurrence: None)
  Receive Date: 20110805
  Receipt Date: 20110725
  Transmission Date: 20111222
  Serious: Yes (Other)
  Sender: FDA-Public Use
  Company Number: PHHY2011US58798

PATIENT
  Sex: Male
  Weight: 106 kg

DRUGS (10)
  1. TASIGNA [Suspect]
     Dosage: 200 MG, QD
     Route: 048
  2. TASIGNA [Suspect]
     Indication: CHRONIC MYELOID LEUKAEMIA
     Dosage: 400 MG, BID
     Route: 048
     Dates: start: 20110406, end: 20110504
  3. TASIGNA [Suspect]
     Dosage: 200 MG, BID
     Route: 048
     Dates: start: 20110615
  4. CARISOPRODOL [Concomitant]
     Dosage: 350 MG, QD
     Route: 048
  5. AVINZA [Concomitant]
     Dosage: 30 MG, QD
     Route: 048
  6. TASIGNA [Suspect]
     Dosage: 200 MG BID AND 200 MG QD ON ALTERNATE DAYS
     Route: 048
     Dates: start: 20110608, end: 20110614
  7. CELEXA [Concomitant]
     Dosage: 20 MG, QD
     Route: 048
  8. LOPRESSOR [Concomitant]
     Dosage: 50 MG, QD
     Route: 048
  9. HYDROCHLOROTHIAZIDE [Concomitant]
     Dosage: 25 MG, QD
     Route: 048
  10. ALLOPURINOL [Concomitant]
     Dosage: 300 MG, QD

REACTIONS (1)
  - WHITE BLOOD CELL COUNT DECREASED [None]
